FAERS Safety Report 14828286 (Version 1)
Quarter: 2018Q2

REPORT INFORMATION
  Report Type: Report from Study
  Country: CA (occurrence: CA)
  Receive Date: 20180430
  Receipt Date: 20180430
  Transmission Date: 20180711
  Serious: Yes (Hospitalization)
  Sender: FDA-Public Use
  Company Number: CA-JNJFOC-20180433996

PATIENT
  Age: 78 Year
  Sex: Female
  Weight: 87.09 kg

DRUGS (1)
  1. SIMPONI [Suspect]
     Active Substance: GOLIMUMAB
     Indication: RHEUMATOID ARTHRITIS
     Dosage: STRENGTH = 50 MG
     Route: 058
     Dates: start: 20171022

REACTIONS (3)
  - Pneumonia [Unknown]
  - Tinnitus [Unknown]
  - Dizziness [Unknown]

NARRATIVE: CASE EVENT DATE: 20180413
